FAERS Safety Report 16952889 (Version 2)
Quarter: 2019Q4

REPORT INFORMATION
  Report Type: Spontaneous
  Country: US (occurrence: US)
  Receive Date: 20191023
  Receipt Date: 20191205
  Transmission Date: 20200122
  Serious: No
  Sender: FDA-Public Use
  Company Number: US-009507513-1910USA009755

PATIENT
  Sex: Female
  Weight: 79.82 kg

DRUGS (1)
  1. NEXPLANON [Suspect]
     Active Substance: ETONOGESTREL
     Indication: CONTRACEPTION
     Dosage: 1 IMPLANT, 68 MILLIGRAM, ONCE
     Route: 059
     Dates: start: 20180718, end: 20180828

REACTIONS (2)
  - Adverse drug reaction [Unknown]
  - Mood swings [Unknown]

NARRATIVE: CASE EVENT DATE: 2018
